FAERS Safety Report 4507618-6 (Version None)
Quarter: 2004Q4

REPORT INFORMATION
  Report Type: 
  Country: None (occurrence: None)
  Receive Date: 20040928
  Receipt Date: 20040729
  Transmission Date: 20050328
  Serious: Yes (Hospitalization)
  Sender: FDA-Public Use
  Company Number: 04P-163-0268423-00

PATIENT
  Age: 49 Year
  Weight: 104.7809 kg

DRUGS (13)
  1. HUMIRA [Suspect]
     Indication: RHEUMATOID ARTHRITIS
     Dosage: 40 MG, 1 IN 2 WK, SUBCUTANEOUS
     Route: 058
     Dates: start: 20030101
  2. METHOTREXATE SODIUM [Concomitant]
  3. CELECOXIB [Concomitant]
  4. PREDNISONE [Concomitant]
  5. PROPACET 100 [Concomitant]
  6. CO-DIOVAN [Concomitant]
  7. FUROSEMIDE [Concomitant]
  8. MIRTAZAPINE [Concomitant]
  9. BUSPIRONE HCL [Concomitant]
  10. LORAZEPAM [Concomitant]
  11. IRON [Concomitant]
  12. POTASSIUM CHLORIDE [Concomitant]
  13. FOLIC ACID [Concomitant]

REACTIONS (2)
  - CHEST PAIN [None]
  - DYSPNOEA [None]
